FAERS Safety Report 17691632 (Version 1)
Quarter: 2020Q2

REPORT INFORMATION
  Report Type: Spontaneous
  Country: US (occurrence: US)
  Receive Date: 20200422
  Receipt Date: 20200422
  Transmission Date: 20200714
  Serious: No
  Sender: FDA-Public Use
  Company Number: US-ALLERGAN-2008583US

PATIENT
  Age: 76 Year
  Sex: Female
  Weight: 68.95 kg

DRUGS (2)
  1. RISEDRONATE SODIUM DR 35MG [Suspect]
     Active Substance: RISEDRONATE SODIUM
     Indication: HIP FRACTURE
     Dosage: UNK, Q WEEK
     Route: 048
  2. SYNTHROID [Concomitant]
     Active Substance: LEVOTHYROXINE SODIUM
     Indication: HYPOTHYROIDISM
     Dosage: 0.1 MG, QD

REACTIONS (1)
  - Extra dose administered [Unknown]

NARRATIVE: CASE EVENT DATE: 20200219
